FAERS Safety Report 4978287-6 (Version None)
Quarter: 2006Q2

REPORT INFORMATION
  Report Type: 
  Country: None (occurrence: None)
  Receive Date: 20060414
  Receipt Date: 20060403
  Transmission Date: 20061013
  Serious: Yes (Life-Threatening, Other)
  Sender: FDA-Public Use
  Company Number: T200600153

PATIENT
  Age: 34 Year
  Sex: Female
  Weight: 92.5 kg

DRUGS (4)
  1. OPTIRAY 160 [Suspect]
     Indication: COMPUTERISED TOMOGRAM THORAX
     Dosage: 100 ML, SINGLE, INTRAVENOUS
     Route: 042
     Dates: start: 20060331, end: 20060331
  2. PREDNISONE TAB [Concomitant]
  3. ALBUTEROL /00139501/ (SALBUTAMOL) [Concomitant]
  4. BIAXIN [Concomitant]

REACTIONS (8)
  - CHEST DISCOMFORT [None]
  - DYSPNOEA [None]
  - LUNG NEOPLASM [None]
  - MUSCLE SPASMS [None]
  - PHARYNGOLARYNGEAL PAIN [None]
  - SWOLLEN TONGUE [None]
  - TREMOR [None]
  - WHEEZING [None]
